FAERS Safety Report 9837781 (Version 1)
Quarter: 2013Q4

REPORT INFORMATION
  Report Type: Spontaneous
  Country: US (occurrence: None)
  Receive Date: 20131129
  Receipt Date: 20131129
  Transmission Date: 20140711
  Serious: No
  Sender: FDA-Public Use
  Company Number: SYM-2013-13203

PATIENT
  Age: 78 Year
  Sex: Male

DRUGS (1)
  1. XENAZINE (TETRABENAZINE) (TABLET) (TETRABENAZINE) [Suspect]
     Indication: CHOREA
     Dosage: 12.5MG, 3 IN 1 D , ORAL
     Route: 048
     Dates: end: 20131119

REACTIONS (1)
  - Suicidal ideation [None]
